FAERS Safety Report 12404121 (Version 1)
Quarter: 2016Q2

REPORT INFORMATION
  Report Type: Spontaneous
  Country: US (occurrence: US)
  Receive Date: 20160525
  Receipt Date: 20160525
  Transmission Date: 20160815
  Serious: No
  Sender: FDA-Public Use
  Company Number: US-SA-2016SA076270

PATIENT
  Age: 59 Year
  Sex: Female

DRUGS (1)
  1. ELOXATIN [Suspect]
     Active Substance: OXALIPLATIN
     Indication: COLON CANCER
     Dosage: ROUTE-IV INFUSION
     Dates: start: 201602

REACTIONS (1)
  - Aura [Unknown]
